FAERS Safety Report 7444869-5 (Version None)
Quarter: 2011Q2

REPORT INFORMATION
  Report Type: 
  Country: None (occurrence: None)
  Receive Date: 20110429
  Receipt Date: 20110418
  Transmission Date: 20111010
  Serious: Yes (Other)
  Sender: FDA-Public Use
  Company Number: PHHY2011BR33181

PATIENT
  Sex: Female

DRUGS (3)
  1. TEGRETOL-XR [Suspect]
     Dosage: 200 MG, UNK
  2. HIDANTAL [Suspect]
  3. DEPAKOTE [Suspect]

REACTIONS (7)
  - OEDEMA MOUTH [None]
  - THROAT TIGHTNESS [None]
  - DYSPHAGIA [None]
  - AURICULAR SWELLING [None]
  - WEIGHT INCREASED [None]
  - HYPERSENSITIVITY [None]
  - PYREXIA [None]
